FAERS Safety Report 23625668 (Version 2)
Quarter: 2024Q1

REPORT INFORMATION
  Report Type: Spontaneous
  Country: AU (occurrence: AU)
  Receive Date: 20240313
  Receipt Date: 20240319
  Transmission Date: 20240410
  Serious: Yes (Life-Threatening, Other)
  Sender: FDA-Public Use
  Company Number: AU-002147023-NVSC2024AU051058

PATIENT

DRUGS (1)
  1. ELTROMBOPAG [Suspect]
     Active Substance: ELTROMBOPAG
     Indication: Immune thrombocytopenia
     Dosage: UNK
     Route: 065

REACTIONS (6)
  - Antiphospholipid syndrome [Unknown]
  - Adrenal haemorrhage [Unknown]
  - Pulmonary embolism [Unknown]
  - Cerebellar stroke [Unknown]
  - Device related thrombosis [Unknown]
  - Hepatic vascular thrombosis [Unknown]
